FAERS Safety Report 13576982 (Version 1)
Quarter: 2017Q2

REPORT INFORMATION
  Report Type: Spontaneous
  Country: DE (occurrence: DE)
  Receive Date: 20170524
  Receipt Date: 20170524
  Transmission Date: 20170830
  Serious: Yes (Death, Life-Threatening, Disabling, Other)
  Sender: FDA-Public Use
  Company Number: DE-BRISTOL-MYERS SQUIBB COMPANY-BMS-2017-019335

PATIENT
  Age: 51 Year
  Sex: Female
  Weight: 94 kg

DRUGS (1)
  1. ELIQUIS [Suspect]
     Active Substance: APIXABAN
     Indication: DEEP VEIN THROMBOSIS
     Dosage: 20 MG, DAILY
     Route: 048
     Dates: start: 201702, end: 20170303

REACTIONS (2)
  - Cerebrovascular accident [Recovered/Resolved]
  - Metastases to liver [Fatal]

NARRATIVE: CASE EVENT DATE: 20170302
